FAERS Safety Report 12746129 (Version 1)
Quarter: 2016Q3

REPORT INFORMATION
  Report Type: Spontaneous
  Country: LV (occurrence: LV)
  Receive Date: 20160915
  Receipt Date: 20160915
  Transmission Date: 20161109
  Serious: Yes (Disabling, Other)
  Sender: FDA-Public Use
  Company Number: PHHY2016LV110024

PATIENT
  Age: 63 Year
  Sex: Female
  Weight: 53 kg

DRUGS (4)
  1. CALCIGRAN FORTE [Concomitant]
     Dosage: 1 DF, BID (500 MG CALCIUM, 200 SV (5 MKG) D3 VITAMIN (CHOLECALCIFEROLUM))
     Route: 048
  2. VIGANTOL ^MERCK^ [Concomitant]
     Indication: OSTEOPOROSIS
     Dosage: 5 DRP, UNK
     Route: 048
     Dates: start: 20130910, end: 20160802
  3. CALCIGRAN FORTE [Concomitant]
     Indication: OSTEOPOROSIS
     Dosage: 1500 MG, UNK
     Route: 048
     Dates: start: 20100910, end: 20160802
  4. ACLASTA [Suspect]
     Active Substance: ZOLEDRONIC ACID
     Indication: OSTEOPOROTIC FRACTURE
     Dosage: 5 MG, ONCE/SINGLE
     Route: 042
     Dates: start: 20160801

REACTIONS (14)
  - Visual field defect [Unknown]
  - Lacrimation increased [Unknown]
  - Eye irritation [Unknown]
  - Red blood cell sedimentation rate increased [Unknown]
  - Diplopia [Unknown]
  - Pyrexia [Recovered/Resolved]
  - Foreign body sensation in eyes [Unknown]
  - Eye pruritus [Unknown]
  - C-reactive protein increased [Unknown]
  - Ocular hyperaemia [Unknown]
  - Photopsia [Unknown]
  - Eye pain [Recovered/Resolved]
  - Photophobia [Unknown]
  - Uveitis [Recovered/Resolved]

NARRATIVE: CASE EVENT DATE: 20160802
